FAERS Safety Report 7572061-2 (Version None)
Quarter: 2011Q2

REPORT INFORMATION
  Report Type: 
  Country: None (occurrence: None)
  Receive Date: 20110624
  Receipt Date: 20110615
  Transmission Date: 20111010
  Serious: Yes (Other)
  Sender: FDA-Public Use
  Company Number: JP-JNJFOC-20110609429

PATIENT

DRUGS (7)
  1. CELECOXIB [Concomitant]
     Route: 048
  2. RIKKUNSHI-TO [Concomitant]
     Route: 048
  3. GALANTAMINE HYDROBROMIDE [Suspect]
     Indication: PRODUCT USED FOR UNKNOWN INDICATION
     Route: 048
     Dates: start: 20110405, end: 20110614
  4. MUCOSTA [Concomitant]
     Route: 048
  5. RHEUMATREX [Concomitant]
     Route: 048
  6. ACTONEL [Concomitant]
     Route: 048
  7. ACINON [Concomitant]
     Route: 048

REACTIONS (3)
  - NAUSEA [None]
  - ABDOMINAL PAIN UPPER [None]
  - PANCYTOPENIA [None]
